FAERS Safety Report 15593672 (Version 1)
Quarter: 2018Q4

REPORT INFORMATION
  Report Type: Spontaneous
  Country: US (occurrence: US)
  Receive Date: 20181106
  Receipt Date: 20181106
  Transmission Date: 20190205
  Serious: No
  Sender: FDA-Public Use
  Company Number: US-SHIONOGI, INC-2018001416

PATIENT
  Age: 60 Year
  Sex: Female

DRUGS (2)
  1. SYMPROIC [Suspect]
     Active Substance: NALDEMEDINE
     Indication: CONSTIPATION
     Dosage: 0.2 MG, QD
     Route: 065
     Dates: start: 20180705, end: 20180706
  2. SYMPROIC [Suspect]
     Active Substance: NALDEMEDINE
     Dosage: 0.4 MG, QD
     Route: 065
     Dates: start: 201807

REACTIONS (4)
  - Prescription drug used without a prescription [Unknown]
  - Intentional overdose [Unknown]
  - No adverse event [Unknown]
  - Drug ineffective [Unknown]

NARRATIVE: CASE EVENT DATE: 201807
